FAERS Safety Report 21052539 (Version 2)
Quarter: 2022Q4

REPORT INFORMATION
  Report Type: Spontaneous
  Country: US (occurrence: US)
  Receive Date: 20220707
  Receipt Date: 20221202
  Transmission Date: 20230112
  Serious: Yes (Other)
  Sender: FDA-Public Use
  Company Number: US-BRISTOL-MYERS SQUIBB COMPANY-2022-058412

PATIENT
  Age: 57 Year
  Sex: Female

DRUGS (2)
  1. REVLIMID [Suspect]
     Active Substance: LENALIDOMIDE
     Indication: Autologous haematopoietic stem cell transplant
     Route: 048
  2. REVLIMID [Suspect]
     Active Substance: LENALIDOMIDE
     Dosage: TAKE 1 CAPSULE BY MOUTH DAILY FOR 21 DAYS HOLD MEDICATION FOR 7 DAYS REPEAT CYCLE EVERY 28 DAYS
     Route: 048

REACTIONS (8)
  - Inappropriate schedule of product administration [Unknown]
  - Intentional product use issue [Unknown]
  - Bone marrow disorder [Unknown]
  - Syncope [Unknown]
  - Limb injury [Unknown]
  - Extrasystoles [Unknown]
  - Tachyphrenia [Unknown]
  - Sleep disorder [Unknown]
